FAERS Safety Report 6101310-2 (Version None)
Quarter: 2009Q1

REPORT INFORMATION
  Report Type: 
  Country: None (occurrence: None)
  Receive Date: 20090304
  Receipt Date: 20001122
  Transmission Date: 20090719
  Serious: No
  Sender: FDA-Public Use
  Company Number: US-ABBOTT-08P-163-0456824-00

PATIENT
  Age: 17 Year

DRUGS (3)
  1. VALPROATE SODIUM [Suspect]
     Indication: DRUG USE FOR UNKNOWN INDICATION
  2. TOPIRAMATE [Interacting]
     Indication: DRUG USE FOR UNKNOWN INDICATION
  3. OXCARBAZEPINE [Interacting]
     Indication: DRUG USE FOR UNKNOWN INDICATION

REACTIONS (4)
  - ABNORMAL BEHAVIOUR [None]
  - ALOPECIA [None]
  - COGNITIVE DISORDER [None]
  - DRUG INTERACTION [None]
